FAERS Safety Report 4322262-1 (Version None)
Quarter: 2004Q1

REPORT INFORMATION
  Report Type: 
  Country: None (occurrence: None)
  Receive Date: 20040319
  Receipt Date: 20040302
  Transmission Date: 20041129
  Serious: Yes (Hospitalization)
  Sender: FDA-Public Use
  Company Number: F01200400005

PATIENT
  Age: 61 Year
  Sex: Female

DRUGS (9)
  1. (OXALIPLATIN) [Suspect]
     Indication: COLORECTAL CANCER
     Dosage: 85 MG/M2 Q2W INTRAVENOUS NOS
     Route: 042
     Dates: start: 20031218, end: 20031218
  2. FLUOROURACIL [Suspect]
     Dosage: 500 MG/M2 BOLUS ON D1INTRAVENOUS BOLUS
     Route: 040
     Dates: start: 20031218, end: 20031218
  3. LEUCOVORIN CALCIUM [Suspect]
     Dosage: D8 AND D15, Q4W, 20 MG/M2 ON D1
     Route: 040
     Dates: start: 20031218, end: 20031218
  4. AVASTIN [Suspect]
     Dosage: 5 MG/KG (D1 AND D15-Q4W) OVER 30-90 MNUTES IV INFUSION
     Route: 042
     Dates: start: 20031218, end: 20031218
  5. FLAGYL [Concomitant]
  6. KYTRIL [Concomitant]
  7. LOMOTIL [Concomitant]
  8. CIPRO [Concomitant]
  9. ZOFRAN [Concomitant]

REACTIONS (8)
  - BLOOD CREATININE INCREASED [None]
  - DEHYDRATION [None]
  - GASTROENTERITIS [None]
  - HYPONATRAEMIA [None]
  - HYPOTENSION [None]
  - INTESTINAL DILATATION [None]
  - SUPRAVENTRICULAR TACHYCARDIA [None]
  - SYNCOPE [None]
